FAERS Safety Report 11813343 (Version 1)
Quarter: 2015Q4

REPORT INFORMATION
  Report Type: Spontaneous
  Country: CA (occurrence: CA)
  Receive Date: 20151209
  Receipt Date: 20151209
  Transmission Date: 20160305
  Serious: Yes (Other)
  Sender: FDA-Public Use
  Company Number: CA-TEVA-613777ACC

PATIENT
  Sex: Female

DRUGS (4)
  1. AVAPRO [Concomitant]
     Active Substance: IRBESARTAN
  2. DESICCATED THYROID (PORCINE) [Concomitant]
  3. IRBESARTAN. [Suspect]
     Active Substance: IRBESARTAN
     Indication: HYPERTENSION
     Dosage: 300 MILLIGRAM DAILY;
     Route: 048
  4. LORAZEPAM. [Concomitant]
     Active Substance: LORAZEPAM

REACTIONS (5)
  - Impaired driving ability [Recovered/Resolved]
  - Activities of daily living impaired [Recovered/Resolved]
  - Headache [Recovered/Resolved]
  - Hypoacusis [Recovered/Resolved]
  - Abasia [Recovered/Resolved]
